FAERS Safety Report 21419593 (Version 2)
Quarter: 2022Q4

REPORT INFORMATION
  Report Type: Report from Study
  Country: FR (occurrence: FR)
  Receive Date: 20221006
  Receipt Date: 20221017
  Transmission Date: 20230113
  Serious: Yes (Other)
  Sender: FDA-Public Use
  Company Number: FR-BRISTOL-MYERS SQUIBB COMPANY-2022-115527

PATIENT
  Age: 47 Year
  Sex: Male
  Weight: 62 kg

DRUGS (18)
  1. POMALIDOMIDE [Suspect]
     Active Substance: POMALIDOMIDE
     Indication: Plasma cell myeloma
     Route: 065
     Dates: start: 20220817, end: 20220817
  2. POMALIDOMIDE [Suspect]
     Active Substance: POMALIDOMIDE
     Route: 065
     Dates: start: 20220824, end: 20220824
  3. POMALIDOMIDE [Suspect]
     Active Substance: POMALIDOMIDE
     Route: 065
     Dates: start: 20220831, end: 20220831
  4. ISATUXIMAB [Suspect]
     Active Substance: ISATUXIMAB
     Indication: Plasma cell myeloma
     Dosage: DAY OF CYCLE: 14, NUMBER OF CYCLE: 1
     Route: 065
     Dates: start: 202208, end: 202208
  5. ISATUXIMAB [Suspect]
     Active Substance: ISATUXIMAB
     Dosage: DAY OF CYCLE: 14, NUMBER OF CYCLE: 1
     Route: 065
     Dates: start: 20220817, end: 20220817
  6. ISATUXIMAB [Suspect]
     Active Substance: ISATUXIMAB
     Dosage: DAY OF CYCLE: 14, NUMBER OF CYCLE: 1
     Route: 065
     Dates: start: 202208, end: 202208
  7. CARFILZOMIB [Suspect]
     Active Substance: CARFILZOMIB
     Indication: Plasma cell myeloma
     Dosage: DAY OF CYCLE: 14, NUMBER OF CYCLE: 1
     Route: 065
     Dates: start: 20220817, end: 20220817
  8. CARFILZOMIB [Suspect]
     Active Substance: CARFILZOMIB
     Dosage: DAY OF CYCLE: 14, NUMBER OF CYCLE: 1
     Route: 065
     Dates: start: 20220818, end: 20220818
  9. CARFILZOMIB [Suspect]
     Active Substance: CARFILZOMIB
     Dosage: DAY OF CYCLE: 14, NUMBER OF CYCLE: 1
     Route: 065
     Dates: start: 20220825, end: 20220825
  10. BACTRIM [Concomitant]
     Active Substance: SULFAMETHOXAZOLE\TRIMETHOPRIM
     Indication: Product used for unknown indication
     Route: 065
  11. LEUCOVORIN CALCIUM [Concomitant]
     Active Substance: LEUCOVORIN CALCIUM
     Indication: Product used for unknown indication
     Route: 065
  12. VALACYCLOVIR HYDROCHLORIDE [Concomitant]
     Active Substance: VALACYCLOVIR HYDROCHLORIDE
     Indication: Product used for unknown indication
     Dosage: 500 MG
     Route: 065
  13. POLYETHYLENE GLYCOLS [Concomitant]
     Active Substance: POLYETHYLENE GLYCOLS
     Indication: Product used for unknown indication
     Route: 065
  14. ASPIRIN [Concomitant]
     Active Substance: ASPIRIN
     Indication: Product used for unknown indication
     Dosage: 100 MG
     Route: 065
  15. DEXAMETHASONE [Concomitant]
     Active Substance: DEXAMETHASONE
     Indication: Plasma cell myeloma
     Route: 048
     Dates: start: 202208, end: 202208
  16. DEXAMETHASONE [Concomitant]
     Active Substance: DEXAMETHASONE
     Route: 048
     Dates: start: 20220817, end: 20220817
  17. DEXAMETHASONE [Concomitant]
     Active Substance: DEXAMETHASONE
     Route: 048
     Dates: start: 20220831, end: 20220831
  18. ACETAMINOPHEN [Concomitant]
     Active Substance: ACETAMINOPHEN
     Indication: Product used for unknown indication
     Route: 065

REACTIONS (3)
  - Lymphopenia [Recovering/Resolving]
  - Leukopenia [Recovering/Resolving]
  - Neutropenia [Recovered/Resolved]

NARRATIVE: CASE EVENT DATE: 20220824
